FAERS Safety Report 16382164 (Version 1)
Quarter: 2019Q2

REPORT INFORMATION
  Report Type: Spontaneous
  Country: CA (occurrence: CA)
  Receive Date: 20190603
  Receipt Date: 20190603
  Transmission Date: 20190711
  Serious: Yes (Life-Threatening, Hospitalization, Other)
  Sender: FDA-Public Use
  Company Number: CA-TEVA-2019-CA-1057630

PATIENT
  Age: 68 Year
  Sex: Male
  Weight: 52.66 kg

DRUGS (7)
  1. ASA [Concomitant]
     Active Substance: ASPIRIN
  2. TRAJENTA [Concomitant]
     Active Substance: LINAGLIPTIN
  3. VALACYCLOVIR [Concomitant]
     Active Substance: VALACYCLOVIR HYDROCHLORIDE
  4. VITAMIN D [Concomitant]
     Active Substance: VITAMIN D NOS
  5. VALSARTAN. [Suspect]
     Active Substance: VALSARTAN
     Indication: TYPE 2 DIABETES MELLITUS
     Dosage: 80 MILLIGRAM DAILY;
     Route: 048
  6. METFORMIN [Concomitant]
     Active Substance: METFORMIN HYDROCHLORIDE
  7. SANDOZ VALSARTAN [Suspect]
     Active Substance: VALSARTAN
     Indication: TYPE 2 DIABETES MELLITUS
     Dosage: 80 MILLIGRAM DAILY;
     Route: 048

REACTIONS (1)
  - B-cell lymphoma [Recovering/Resolving]
